FAERS Safety Report 12454453 (Version 1)
Quarter: 2016Q2

REPORT INFORMATION
  Report Type: Spontaneous
  Country: US (occurrence: US)
  Receive Date: 20160610
  Receipt Date: 20160610
  Transmission Date: 20160815
  Serious: No
  Sender: FDA-Public Use
  Company Number: US-BIOGEN-2016BI00244200

PATIENT
  Sex: Female

DRUGS (1)
  1. TYSABRI [Suspect]
     Active Substance: NATALIZUMAB
     Indication: MULTIPLE SCLEROSIS
     Route: 065
     Dates: start: 20160426

REACTIONS (5)
  - Erythema [Unknown]
  - Adverse drug reaction [Not Recovered/Not Resolved]
  - Pruritus [Unknown]
  - Abdominal pain [Unknown]
  - Dyspnoea [Unknown]
